FAERS Safety Report 8002278-4 (Version None)
Quarter: 2011Q4

REPORT INFORMATION
  Report Type: 
  Country: None (occurrence: None)
  Receive Date: 20111222
  Receipt Date: 20110222
  Transmission Date: 20120403
  Serious: No
  Sender: FDA-Public Use
  Company Number: US-GLAXOSMITHKLINE-A0914793A

PATIENT
  Sex: Male

DRUGS (1)
  1. NICOTINE POLACRILEX [Suspect]
     Route: 002
     Dates: start: 20110219, end: 20110220

REACTIONS (4)
  - HYPERSENSITIVITY [None]
  - FLUID RETENTION [None]
  - DECREASED APPETITE [None]
  - ADVERSE EVENT [None]
